FAERS Safety Report 17258348 (Version 1)
Quarter: 2020Q1

REPORT INFORMATION
  Report Type: Spontaneous
  Country: US (occurrence: US)
  Receive Date: 20200110
  Receipt Date: 20200110
  Transmission Date: 20200409
  Serious: Yes (Hospitalization, Other)
  Sender: FDA-Public Use
  Company Number: US-JNJFOC-20200110727

PATIENT
  Age: 92 Year
  Sex: Female

DRUGS (1)
  1. XARELTO [Suspect]
     Active Substance: RIVAROXABAN
     Indication: THROMBOPHLEBITIS SUPERFICIAL
     Dosage: TOOK THE MEDICATION AT 1:00 PM
     Route: 048
     Dates: start: 20191231

REACTIONS (4)
  - Product use in unapproved indication [Unknown]
  - Haematemesis [Recovered/Resolved]
  - Off label use [Unknown]
  - Arteriovenous malformation [Unknown]
